FAERS Safety Report 5672094-7 (Version None)
Quarter: 2008Q1

REPORT INFORMATION
  Report Type: 
  Country: None (occurrence: None)
  Receive Date: 20080317
  Receipt Date: 20080317
  Transmission Date: 20080703
  Serious: Yes (Life-Threatening)
  Sender: FDA-Public Use
  Company Number: None

PATIENT
  Age: 54 Year
  Sex: Female
  Weight: 69.8539 kg

DRUGS (1)
  1. ZICAM NASAL GEL HOMEOPATHIC REMEDY MATRIXX [Suspect]
     Indication: NASOPHARYNGITIS
     Dosage: 1X NASAL
     Route: 045
     Dates: start: 20080203, end: 20080203

REACTIONS (5)
  - AGEUSIA [None]
  - ANOSMIA [None]
  - EYE IRRITATION [None]
  - LACRIMATION INCREASED [None]
  - SNEEZING [None]
